FAERS Safety Report 5342252-X (Version None)
Quarter: 2007Q2

REPORT INFORMATION
  Report Type: 
  Country: None (occurrence: None)
  Receive Date: 20070601
  Receipt Date: 20070525
  Transmission Date: 20071010
  Serious: Yes (Other)
  Sender: FDA-Public Use
  Company Number: CA-JNJFOC-20070505967

PATIENT
  Sex: Female

DRUGS (1)
  1. REMICADE [Suspect]
     Indication: DRUG USE FOR UNKNOWN INDICATION
     Route: 042

REACTIONS (6)
  - BLOOD PRESSURE INCREASED [None]
  - HYPERHIDROSIS [None]
  - INFUSION RELATED REACTION [None]
  - NAUSEA [None]
  - TACHYCARDIA [None]
  - VOMITING [None]
